FAERS Safety Report 8118863-5 (Version None)
Quarter: 2012Q1

REPORT INFORMATION
  Report Type: 
  Country: None (occurrence: None)
  Receive Date: 20120207
  Receipt Date: 20120131
  Transmission Date: 20120608
  Serious: Yes (Death, Other)
  Sender: FDA-Public Use
  Company Number: IT-ELI_LILLY_AND_COMPANY-IT201202000753

PATIENT

DRUGS (4)
  1. GEMCITABINE HYDROCHLORIDE [Suspect]
     Indication: ADENOCARCINOMA PANCREAS
     Dosage: 800 MG/M2, ON DAY 1 AND 15 OF EVERY 28DAYS
     Route: 042
  2. EPIRUBICIN [Concomitant]
     Indication: ADENOCARCINOMA PANCREAS
     Dosage: 25 MG/M2, ON DAYS 1 AND 15
  3. CAPECITABINE [Concomitant]
     Indication: ADENOCARCINOMA PANCREAS
     Dosage: 1250 MG/M2, FROM DAY 1-28
     Route: 048
  4. CISPLATIN [Concomitant]
     Indication: ADENOCARCINOMA PANCREAS
     Dosage: 30 MG/M2, UNKNOWN
     Route: 042

REACTIONS (1)
  - DIARRHOEA [None]
